FAERS Safety Report 19700187 (Version 1)
Quarter: 2021Q3

REPORT INFORMATION
  Report Type: Spontaneous
  Country: US (occurrence: US)
  Receive Date: 20210814
  Receipt Date: 20210814
  Transmission Date: 20211014
  Serious: Yes (Other)
  Sender: FDA-Public Use
  Company Number: US-AUROBINDO-AUR-APL-2021-034515

PATIENT
  Age: 19 Year
  Sex: Female

DRUGS (6)
  1. LEVETIRACETAM. [Suspect]
     Active Substance: LEVETIRACETAM
     Indication: IDIOPATHIC GENERALISED EPILEPSY
     Dosage: UNK
     Route: 065
  2. TOPIRAMATE. [Suspect]
     Active Substance: TOPIRAMATE
     Indication: IDIOPATHIC GENERALISED EPILEPSY
     Dosage: UNK
     Route: 065
  3. ZONISAMIDE. [Suspect]
     Active Substance: ZONISAMIDE
     Indication: IDIOPATHIC GENERALISED EPILEPSY
     Dosage: UNK
     Route: 065
  4. ETHOSUXIMIDE. [Suspect]
     Active Substance: ETHOSUXIMIDE
     Indication: IDIOPATHIC GENERALISED EPILEPSY
     Dosage: UNK
     Route: 065
  5. LAMOTRIGINE. [Suspect]
     Active Substance: LAMOTRIGINE
     Indication: IDIOPATHIC GENERALISED EPILEPSY
     Dosage: UNK
     Route: 065
  6. CLOBAZAM. [Suspect]
     Active Substance: CLOBAZAM
     Indication: IDIOPATHIC GENERALISED EPILEPSY
     Dosage: UNK
     Route: 065

REACTIONS (1)
  - Drug ineffective [Unknown]
